FAERS Safety Report 6282464-4 (Version None)
Quarter: 2009Q3

REPORT INFORMATION
  Report Type: 
  Country: None (occurrence: None)
  Receive Date: 20090724
  Receipt Date: 20090613
  Transmission Date: 20100115
  Serious: Yes (Other)
  Sender: FDA-Public Use
  Company Number: MX-ROCHE-644206

PATIENT
  Sex: Female
  Weight: 69 kg

DRUGS (4)
  1. PEG-INTERFERON A-2A (RO 25-8310) [Suspect]
     Indication: HEPATITIS C
     Route: 058
     Dates: start: 20090529, end: 20090626
  2. RIBAVIRIN [Suspect]
     Indication: HEPATITIS C
     Dosage: FREQUENCY: 2 MORNING AND 3 EVENING
     Route: 048
     Dates: start: 20090529, end: 20090628
  3. ACETAMINOPHEN [Concomitant]
     Indication: PYREXIA
     Dosage: FREQUENCY: QD PRN
     Route: 048
     Dates: start: 20090605, end: 20090628
  4. METOPROLOL SUCCINATE [Concomitant]
     Indication: HYPERTENSION
     Dosage: FREQUENCY: QD
     Route: 048
     Dates: start: 20060101, end: 20090628

REACTIONS (18)
  - ABDOMINAL PAIN UPPER [None]
  - ABNORMAL LOSS OF WEIGHT [None]
  - ARRHYTHMIA [None]
  - DEPRESSION [None]
  - DIARRHOEA [None]
  - ENCEPHALOPATHY [None]
  - EPISTAXIS [None]
  - HEADACHE [None]
  - HEPATIC FAILURE [None]
  - LETHARGY [None]
  - MUSCLE SPASMS [None]
  - NAUSEA [None]
  - OEDEMA [None]
  - PAIN [None]
  - PYREXIA [None]
  - THROMBOSIS [None]
  - URTICARIA [None]
  - VOMITING [None]
